FAERS Safety Report 8280471-3 (Version None)
Quarter: 2012Q2

REPORT INFORMATION
  Report Type: 
  Country: None (occurrence: None)
  Receive Date: 20120412
  Receipt Date: 20111013
  Transmission Date: 20120825
  Serious: No
  Sender: FDA-Public Use
  Company Number: US-ASTRAZENECA-2011SE07578

PATIENT
  Age: 60 Year
  Sex: Male
  Weight: 50.3 kg

DRUGS (8)
  1. PRILOSEC [Suspect]
     Indication: ABDOMINAL DISCOMFORT
     Route: 048
     Dates: start: 19960101
  2. OMEPRAZOLE [Concomitant]
  3. ALPRAZOLAM [Concomitant]
  4. SEROQUEL XR [Suspect]
     Route: 048
  5. SEROQUEL XR [Suspect]
     Indication: DEPRESSION
     Route: 048
  6. NEXIUM [Suspect]
     Indication: GASTROOESOPHAGEAL REFLUX DISEASE
     Route: 048
     Dates: start: 20101207
  7. LORTAB [Concomitant]
     Dates: start: 19910101
  8. SOMA [Concomitant]

REACTIONS (15)
  - ARTHRITIS [None]
  - BODY TEMPERATURE DECREASED [None]
  - NAUSEA [None]
  - OFF LABEL USE [None]
  - CONFUSIONAL STATE [None]
  - COORDINATION ABNORMAL [None]
  - MUSCULOSKELETAL DISCOMFORT [None]
  - WEIGHT DECREASED [None]
  - AMNESIA [None]
  - INTENTIONAL DRUG MISUSE [None]
  - NERVOUSNESS [None]
  - FEELING ABNORMAL [None]
  - ANXIETY [None]
  - HEADACHE [None]
  - DRUG INEFFECTIVE [None]
